FAERS Safety Report 25217580 (Version 3)
Quarter: 2025Q3

REPORT INFORMATION
  Report Type: Spontaneous
  Country: US (occurrence: US)
  Receive Date: 20250420
  Receipt Date: 20250701
  Transmission Date: 20251020
  Serious: Yes (Other)
  Sender: SANOFI AVENTIS
  Company Number: US-SA-2025SA112607

PATIENT
  Sex: Female
  Weight: 86.18 kg

DRUGS (8)
  1. DUPIXENT [Suspect]
     Active Substance: DUPILUMAB
     Indication: Eosinophilic oesophagitis
     Dosage: 300 MG, QW
     Route: 058
     Dates: start: 202310
  2. ATENOLOL\CHLORTHALIDONE [Concomitant]
     Active Substance: ATENOLOL\CHLORTHALIDONE
  3. CYCLOBENZAPRINE [Concomitant]
     Active Substance: CYCLOBENZAPRINE
  4. OXYCODONE [Concomitant]
     Active Substance: OXYCODONE
  5. LISINOPRIL [Concomitant]
     Active Substance: LISINOPRIL
  6. DOXYCYCLINE [Concomitant]
     Active Substance: DOXYCYCLINE
  7. CEPHALEXIN [Concomitant]
     Active Substance: CEPHALEXIN
  8. CELECOXIB [Concomitant]
     Active Substance: CELECOXIB

REACTIONS (1)
  - Breast cancer female [Unknown]
